FAERS Safety Report 6747577-9 (Version None)
Quarter: 2010Q2

REPORT INFORMATION
  Report Type: 
  Country: None (occurrence: None)
  Receive Date: 20100528
  Receipt Date: 20100520
  Transmission Date: 20101027
  Serious: Yes (Hospitalization)
  Sender: FDA-Public Use
  Company Number: PT-JNJFOC-20100503362

PATIENT
  Age: 26 Year
  Sex: Female

DRUGS (1)
  1. REMICADE [Suspect]
     Indication: INFLAMMATORY BOWEL DISEASE
     Dosage: DOSE, DATES AND FREQUENCY UNSPECIFIED
     Route: 042

REACTIONS (1)
  - CEREBROVASCULAR ACCIDENT [None]
